FAERS Safety Report 13434156 (Version 3)
Quarter: 2017Q2

REPORT INFORMATION
  Report Type: Spontaneous
  Country: US (occurrence: US)
  Receive Date: 20170413
  Receipt Date: 20170605
  Transmission Date: 20170830
  Serious: No
  Sender: FDA-Public Use
  Company Number: US-PFIZER INC-2017157563

PATIENT
  Age: 51 Year
  Sex: Female

DRUGS (3)
  1. LYRICA [Suspect]
     Active Substance: PREGABALIN
     Dosage: 2 DF, DAILY
  2. LYRICA [Suspect]
     Active Substance: PREGABALIN
     Dosage: 300 MG, DAILY
  3. LYRICA [Suspect]
     Active Substance: PREGABALIN
     Indication: AUTONOMIC NEUROPATHY
     Dosage: 200 MG, DAILY

REACTIONS (1)
  - Drug ineffective for unapproved indication [Unknown]
